FAERS Safety Report 5034707-2 (Version None)
Quarter: 2006Q2

REPORT INFORMATION
  Report Type: 
  Country: None (occurrence: None)
  Receive Date: 20060621
  Receipt Date: 20060608
  Transmission Date: 20061013
  Serious: Yes (Hospitalization, Other)
  Sender: FDA-Public Use
  Company Number: USA-2006-0024393

PATIENT
  Age: 52 Year
  Sex: Female
  Weight: 63.5 kg

DRUGS (22)
  1. MS CONTIN [Suspect]
     Dates: start: 20050925
  2. PEG-INTRON [Suspect]
     Indication: HEPATITIS C
     Dates: start: 20050925
  3. RIBASPHERE [Suspect]
     Indication: HEPATITIS C
     Dates: start: 20050925
  4. ASPIRIN [Concomitant]
  5. BUSPAR [Concomitant]
  6. CALCIUM GLUCONATE [Concomitant]
  7. GLUCOSAMINE W/CHONDROITIN SULFATES (ASCORBIC ACID, MANGANESE, CHONDROI [Concomitant]
  8. HYDROMORPHONE HCL [Concomitant]
  9. LECITHIN [Concomitant]
  10. LEVOTHYROXINE SODIUM [Concomitant]
  11. MULTIVITAMINS (NICOTINAMIDE, RIBOFLAVIN, THIAMINE HYDROCHLORIDE, RETIN [Concomitant]
  12. OMEGA-3 (OMEGA-3 TRIGLYCERIDES) [Concomitant]
  13. PROMETHAZINE [Concomitant]
  14. VITAMIN A+D (ERGOCALCIFEROL, RETINOL) [Concomitant]
  15. VITAMIN B COMPLEX CAP [Concomitant]
  16. ASCORBIC ACID [Concomitant]
  17. VITAMIN E [Concomitant]
  18. WELLBUTRIN [Concomitant]
  19. ALBUTEROL SULFATE [Concomitant]
  20. FLAXSEED OIL [Concomitant]
  21. INDERAL [Concomitant]
  22. CALCIUM GLUCONATE [Concomitant]

REACTIONS (33)
  - ABDOMINAL PAIN [None]
  - ASTHENIA [None]
  - ASTHMA [None]
  - BLOOD POTASSIUM DECREASED [None]
  - BRONCHITIS [None]
  - BURNING SENSATION [None]
  - DEHYDRATION [None]
  - DEPRESSION [None]
  - DIARRHOEA [None]
  - DISORIENTATION [None]
  - DISTURBANCE IN ATTENTION [None]
  - DIZZINESS [None]
  - DRUG ABUSER [None]
  - DRUG DEPENDENCE [None]
  - DRUG WITHDRAWAL SYNDROME [None]
  - FEELING ABNORMAL [None]
  - FEELING HOT [None]
  - HAEMATOCRIT DECREASED [None]
  - INJECTION SITE BRUISING [None]
  - INJECTION SITE ERYTHEMA [None]
  - INJECTION SITE REACTION [None]
  - MEMORY IMPAIRMENT [None]
  - MUSCULAR WEAKNESS [None]
  - MYALGIA [None]
  - NAUSEA [None]
  - PARAESTHESIA [None]
  - PNEUMONIA [None]
  - RED BLOOD CELL COUNT DECREASED [None]
  - SCREAMING [None]
  - SPEECH DISORDER [None]
  - TREMOR [None]
  - VOMITING [None]
  - WEIGHT DECREASED [None]
